FAERS Safety Report 5136840-3 (Version None)
Quarter: 2006Q4

REPORT INFORMATION
  Report Type: 
  Country: None (occurrence: None)
  Receive Date: 20061023
  Receipt Date: 20061011
  Transmission Date: 20070319
  Serious: No
  Sender: FDA-Public Use
  Company Number: 805#1#2006-00100

PATIENT
  Age: 80 Year
  Sex: Female

DRUGS (3)
  1. ALPROSTADIL [Suspect]
     Indication: HEPATIC FAILURE
     Dosage: INTRAVENOUS DRIP
     Route: 041
     Dates: start: 20060929, end: 20061005
  2. GALENIC /CILASTATIN/IMIPENEM/ (CILASTATIN, IMIPENEM) [Concomitant]
  3. FLAVINE DENINE DINUCLEOTIDE (FLAVINE DENINE DINUCLEOTIDE) [Concomitant]

REACTIONS (1)
  - PULMONARY OEDEMA [None]
